FAERS Safety Report 7312237-2 (Version None)
Quarter: 2011Q1

REPORT INFORMATION
  Report Type: 
  Country: None (occurrence: None)
  Receive Date: 20110224
  Receipt Date: 20110215
  Transmission Date: 20110831
  Serious: Yes (Other)
  Sender: FDA-Public Use
  Company Number: A0912290A

PATIENT
  Age: 63 Year
  Sex: Female

DRUGS (16)
  1. MUCINEX [Concomitant]
  2. MULTI-VITAMIN [Concomitant]
  3. ZOFRAN [Concomitant]
  4. PHENERGAN [Concomitant]
  5. PROMETHAZINE [Concomitant]
  6. BUPROPION [Concomitant]
  7. LEVOTHYROXINE SODIUM [Concomitant]
  8. WELLBUTRIN [Concomitant]
  9. SYNTHROID [Concomitant]
  10. IMODIUM [Concomitant]
  11. BENADRYL [Concomitant]
  12. NEXIUM [Concomitant]
  13. HEMOCYTE [Concomitant]
  14. VOTRIENT [Suspect]
     Dosage: 400MG PER DAY
     Route: 048
     Dates: start: 20110124, end: 20110213
  15. HYDROCODONE BITARTRATE [Concomitant]
  16. ESTRADIOL [Concomitant]

REACTIONS (11)
  - PRURITUS [None]
  - LABORATORY TEST ABNORMAL [None]
  - JAUNDICE [None]
  - NAUSEA [None]
  - DIARRHOEA [None]
  - BLOOD BILIRUBIN INCREASED [None]
  - CHROMATURIA [None]
  - OCULAR ICTERUS [None]
  - VOMITING [None]
  - ABDOMINAL PAIN [None]
  - LIVER FUNCTION TEST ABNORMAL [None]
